FAERS Safety Report 22235724 (Version 1)
Quarter: 2023Q2

REPORT INFORMATION
  Report Type: Spontaneous
  Country: AT (occurrence: AT)
  Receive Date: 20230420
  Receipt Date: 20230420
  Transmission Date: 20230721
  Serious: Yes (Other)
  Sender: FDA-Public Use
  Company Number: AT-AMGEN-AUTSP2023060569

PATIENT
  Age: 55 Year
  Sex: Male

DRUGS (11)
  1. ADALIMUMAB [Suspect]
     Active Substance: ADALIMUMAB
     Indication: Hidradenitis
     Dosage: UNK
     Route: 065
  2. ADALIMUMAB [Suspect]
     Active Substance: ADALIMUMAB
     Indication: Psoriasis
  3. ADALIMUMAB [Suspect]
     Active Substance: ADALIMUMAB
     Indication: Crohn^s disease
  4. CREON [Concomitant]
     Active Substance: PANCRELIPASE AMYLASE\PANCRELIPASE LIPASE\PANCRELIPASE PROTEASE
  5. Oleovit [Concomitant]
  6. BUDESONIDE [Concomitant]
     Active Substance: BUDESONIDE
  7. MAGNESIUM [Concomitant]
     Active Substance: MAGNESIUM
  8. DIETARY SUPPLEMENT\HERBALS\MILK THISTLE [Concomitant]
     Active Substance: MILK THISTLE
  9. VALSARTAN [Concomitant]
     Active Substance: VALSARTAN
  10. JARDIANCE [Concomitant]
     Active Substance: EMPAGLIFLOZIN
  11. ISOPHANE INSULIN [Concomitant]
     Active Substance: INSULIN NOS

REACTIONS (2)
  - Hidradenitis [Unknown]
  - Psoriasis [Unknown]
